FAERS Safety Report 18429234 (Version 3)
Quarter: 2020Q4

REPORT INFORMATION
  Report Type: Spontaneous
  Country: PK (occurrence: PK)
  Receive Date: 20201026
  Receipt Date: 20201112
  Transmission Date: 20210114
  Serious: Yes (Other)
  Sender: FDA-Public Use
  Company Number: PK-NOVOPROD-760879

PATIENT
  Age: 65 Year
  Sex: Male
  Weight: 98 kg

DRUGS (3)
  1. NOVOMIX 50 FLEXPEN [Suspect]
     Active Substance: INSULIN ASPART
     Indication: TYPE 2 DIABETES MELLITUS
     Dosage: 63 IU, QD (40+23)
     Route: 058
     Dates: start: 20200928
  2. NOVOMIX 50 FLEXPEN [Suspect]
     Active Substance: INSULIN ASPART
     Dosage: 80 IU, QD (40+10+30)
     Route: 058
  3. NOVOMIX 50 FLEXPEN [Suspect]
     Active Substance: INSULIN ASPART
     Dosage: 95 IU, QD (50 + 45)
     Route: 058

REACTIONS (3)
  - Fall [Not Recovered/Not Resolved]
  - Foot fracture [Not Recovered/Not Resolved]
  - Hyperglycaemia [Not Recovered/Not Resolved]

NARRATIVE: CASE EVENT DATE: 20201009
